FAERS Safety Report 7908625-3 (Version None)
Quarter: 2011Q4

REPORT INFORMATION
  Report Type: 
  Country: None (occurrence: None)
  Receive Date: 20111111
  Receipt Date: 20111103
  Transmission Date: 20120403
  Serious: Yes (Disabling, Other)
  Sender: FDA-Public Use
  Company Number: NO-UCBSA-044534

PATIENT
  Age: 41 Year
  Sex: Female

DRUGS (3)
  1. CIMZIA [Suspect]
     Indication: PSORIATIC ARTHROPATHY
     Route: 058
     Dates: start: 20101201, end: 20110101
  2. ENBREL [Suspect]
     Indication: PSORIATIC ARTHROPATHY
     Dates: start: 20040601, end: 20060701
  3. HUMIRA [Suspect]
     Indication: PSORIATIC ARTHROPATHY
     Dates: start: 20060701, end: 20101201

REACTIONS (2)
  - OPTIC NEURITIS [None]
  - CENTRAL NERVOUS SYSTEM LESION [None]
